FAERS Safety Report 24047424 (Version 2)
Quarter: 2024Q3

REPORT INFORMATION
  Report Type: Report from Study
  Country: ES (occurrence: ES)
  Receive Date: 20240703
  Receipt Date: 20240726
  Transmission Date: 20241017
  Serious: Yes (Disabling)
  Sender: TEVA
  Company Number: ES-TEVA-VS-3184056

PATIENT
  Age: 66 Year
  Sex: Female

DRUGS (2)
  1. TERIPARATIDE [Suspect]
     Active Substance: TERIPARATIDE
     Indication: Osteoporosis
     Dosage: 20 MCG/80 ML
     Route: 065
     Dates: start: 20240409, end: 20240715
  2. CALCIFEDIOL [Concomitant]
     Active Substance: CALCIFEDIOL
     Indication: Vitamin D deficiency
     Route: 065
     Dates: start: 2016

REACTIONS (6)
  - Arthralgia [Not Recovered/Not Resolved]
  - Procedural intestinal perforation [Unknown]
  - Product storage error [Unknown]
  - Product dose omission issue [Unknown]
  - Back pain [Not Recovered/Not Resolved]
  - Abdominal distension [Not Recovered/Not Resolved]

NARRATIVE: CASE EVENT DATE: 20240409
